FAERS Safety Report 20662862 (Version 1)
Quarter: 2022Q2

REPORT INFORMATION
  Report Type: Spontaneous
  Country: JP (occurrence: JP)
  Receive Date: 20220401
  Receipt Date: 20220401
  Transmission Date: 20220720
  Serious: Yes (Other)
  Sender: FDA-Public Use
  Company Number: JP-ADVANZ PHARMA-202203001887

PATIENT

DRUGS (4)
  1. ZONISAMIDE [Suspect]
     Active Substance: ZONISAMIDE
     Indication: Dementia with Lewy bodies
     Dosage: 25 MG, QD (TRERIEF ORODISPERSIBLE TABLET)
     Route: 048
     Dates: start: 202111, end: 202201
  2. ZONISAMIDE [Suspect]
     Active Substance: ZONISAMIDE
     Indication: Parkinsonism
     Dosage: 25 MG
     Dates: start: 202201
  3. CARBIDOPA\LEVODOPA [Concomitant]
     Active Substance: CARBIDOPA\LEVODOPA
     Indication: Dementia with Lewy bodies
     Dosage: 300 MG
  4. CARBIDOPA\LEVODOPA [Concomitant]
     Active Substance: CARBIDOPA\LEVODOPA
     Indication: Parkinsonism

REACTIONS (1)
  - Hallucination [Recovering/Resolving]

NARRATIVE: CASE EVENT DATE: 20220101
